FAERS Safety Report 24671158 (Version 1)
Quarter: 2024Q4

REPORT INFORMATION
  Report Type: Spontaneous
  Country: US (occurrence: US)
  Receive Date: 20241127
  Receipt Date: 20241127
  Transmission Date: 20250114
  Serious: Yes (Hospitalization, Other)
  Sender: AMGEN
  Company Number: US-AMGEN-USASP2024231318

PATIENT
  Sex: Male

DRUGS (10)
  1. PREDNISONE [Suspect]
     Active Substance: PREDNISONE
     Indication: Immunosuppressant drug therapy
     Dosage: UNK
     Route: 065
  2. BASILIXIMAB [Concomitant]
     Active Substance: BASILIXIMAB
     Indication: Immunosuppressant drug therapy
     Dosage: UNK
     Route: 065
  3. TACROLIMUS [Concomitant]
     Active Substance: TACROLIMUS
     Indication: Immunosuppressant drug therapy
     Dosage: UNK
     Route: 065
  4. MYCOPHENOLATE MOFETIL [Concomitant]
     Active Substance: MYCOPHENOLATE MOFETIL
     Indication: Immunosuppressant drug therapy
     Dosage: UNK
     Route: 065
  5. CYCLOSPORINE [Concomitant]
     Active Substance: CYCLOSPORINE
     Indication: Immunosuppressant drug therapy
     Dosage: UNK
     Route: 065
  6. HEPARIN [Concomitant]
     Active Substance: HEPARIN SODIUM
     Dosage: UNK
     Route: 065
  7. MORPHINE [Concomitant]
     Active Substance: MORPHINE
     Dosage: UNK
     Route: 065
  8. METHYLPREDNISOLONE [Concomitant]
     Active Substance: METHYLPREDNISOLONE
     Dosage: 750 MILLIGRAM
     Route: 040
  9. BELATACEPT [Concomitant]
     Active Substance: BELATACEPT
     Dosage: UNK
     Route: 065
  10. POSACONAZOLE [Concomitant]
     Active Substance: POSACONAZOLE
     Indication: Antifungal prophylaxis
     Dosage: 2.5 MILLIGRAM, BID
     Route: 065

REACTIONS (14)
  - Atrial thrombosis [Unknown]
  - Pneumonia [Unknown]
  - Complications of transplanted lung [Unknown]
  - Vascular stent occlusion [Unknown]
  - Acute respiratory failure [Unknown]
  - Bronchiolitis obliterans syndrome [Unknown]
  - Shock [Unknown]
  - Acute kidney injury [Unknown]
  - Lung transplant rejection [Unknown]
  - Post procedural infection [Unknown]
  - Pleural effusion [Unknown]
  - Transplantation complication [Unknown]
  - Malnutrition [Unknown]
  - Right ventricular systolic pressure increased [Unknown]
